FAERS Safety Report 25483826 (Version 1)
Quarter: 2025Q2

REPORT INFORMATION
  Report Type: Spontaneous
  Country: KR (occurrence: KR)
  Receive Date: 20250626
  Receipt Date: 20250626
  Transmission Date: 20250717
  Serious: Yes (Death, Hospitalization, Other)
  Sender: EXELA PHARMA SCIENCES
  Company Number: KR-EXELAPHARMA-2025EXLA00108

PATIENT
  Age: 77 Year
  Sex: Female
  Weight: 50 kg

DRUGS (16)
  1. NIPRIDE RTU [Suspect]
     Active Substance: SODIUM NITROPRUSSIDE
     Indication: Mean arterial pressure increased
  2. NIPRIDE RTU [Suspect]
     Active Substance: SODIUM NITROPRUSSIDE
     Indication: Blood pressure decreased
  3. NIPRIDE RTU [Suspect]
     Active Substance: SODIUM NITROPRUSSIDE
  4. b blocker [Concomitant]
     Indication: Hypertension
  5. UNSPECIFIED INGREDIENT [Concomitant]
     Active Substance: UNSPECIFIED INGREDIENT
     Indication: Hypertension
  6. UNSPECIFIED INGREDIENT [Concomitant]
     Active Substance: UNSPECIFIED INGREDIENT
     Indication: Hypertension
  7. ASPIRIN [Concomitant]
     Active Substance: ASPIRIN
     Indication: Hypertension
  8. CLOPIDOGREL [Concomitant]
     Active Substance: CLOPIDOGREL BISULFATE
     Indication: Hypertension
  9. LABETALOL [Concomitant]
     Active Substance: LABETALOL
  10. MIDAZOLAM [Concomitant]
     Active Substance: MIDAZOLAM
     Indication: Premedication
     Route: 030
  11. MORPHINE [Concomitant]
     Active Substance: MORPHINE
     Indication: Premedication
     Route: 030
  12. packed RBC [Concomitant]
     Indication: Cardiopulmonary bypass
  13. MILRINONE [Concomitant]
     Active Substance: MILRINONE
  14. DOBUTAMINE [Concomitant]
     Active Substance: DOBUTAMINE HYDROCHLORIDE
  15. SUFENTANIL [Concomitant]
     Active Substance: SUFENTANIL
     Indication: Sedation
  16. PROPOFOL [Concomitant]
     Active Substance: PROPOFOL
     Indication: Sedation

REACTIONS (3)
  - Tachyphylaxis [Recovered/Resolved]
  - Toxicity to various agents [Fatal]
  - Multiple organ dysfunction syndrome [Fatal]
